FAERS Safety Report 4737042-2 (Version None)
Quarter: 2005Q3

REPORT INFORMATION
  Report Type: 
  Country: None (occurrence: None)
  Receive Date: 20050808
  Receipt Date: 20050727
  Transmission Date: 20060218
  Serious: Yes (Other)
  Sender: FDA-Public Use
  Company Number: 2005UW11117

PATIENT
  Age: 65 Year
  Sex: Female

DRUGS (1)
  1. CRESTOR [Suspect]
     Route: 048

REACTIONS (2)
  - DIALYSIS [None]
  - RENAL FAILURE ACUTE [None]
